FAERS Safety Report 5489309-0 (Version None)
Quarter: 2007Q4

REPORT INFORMATION
  Report Type: 
  Country: None (occurrence: None)
  Receive Date: 20071018
  Receipt Date: 20071008
  Transmission Date: 20080405
  Serious: Yes (Other)
  Sender: FDA-Public Use
  Company Number: GB-BRISTOL-MYERS SQUIBB COMPANY-13941141

PATIENT
  Age: 62 Year
  Sex: Male

DRUGS (3)
  1. CETUXIMAB [Suspect]
     Indication: COLORECTAL CANCER
     Route: 042
     Dates: start: 20070327, end: 20070327
  2. OXALIPLATIN [Suspect]
     Indication: COLORECTAL CANCER
     Route: 042
     Dates: start: 20070327, end: 20070327
  3. FLUOROURACIL [Suspect]
     Indication: COLORECTAL CANCER
     Dosage: 760MG IV BOLUS; 4560MG IV
     Dates: start: 20070327, end: 20070327

REACTIONS (2)
  - DYSPHAGIA [None]
  - ORTHOPNOEA [None]
